FAERS Safety Report 20082884 (Version 1)
Quarter: 2021Q4

REPORT INFORMATION
  Report Type: Spontaneous
  Country: CA (occurrence: CA)
  Receive Date: 20211117
  Receipt Date: 20211117
  Transmission Date: 20220304
  Serious: Yes (Hospitalization)
  Sender: FDA-Public Use
  Company Number: CA-PFIZER INC-202101512065

PATIENT
  Age: 52 Year
  Sex: Female

DRUGS (1)
  1. METRONIDAZOLE [Suspect]
     Active Substance: METRONIDAZOLE
     Indication: Clostridium difficile infection
     Dosage: UNK

REACTIONS (5)
  - Alcohol intolerance [Unknown]
  - Diarrhoea [Unknown]
  - Nausea [Unknown]
  - Overdose [Unknown]
  - Vomiting [Unknown]
